FAERS Safety Report 10348319 (Version 2)
Quarter: 2014Q3

REPORT INFORMATION
  Report Type: Spontaneous
  Country: IT (occurrence: None)
  Receive Date: 20140725
  Receipt Date: 20140808
  Transmission Date: 20150326
  Serious: Yes (Other)
  Sender: FDA-Public Use
  Company Number: 7308838

PATIENT
  Age: 48 Year
  Sex: Female

DRUGS (2)
  1. OLMESARTAN [Suspect]
     Active Substance: OLMESARTAN
     Indication: HYPERTENSION
     Dosage: 10 MG (10 MG,1 IN 1 D), ORAL 61 DAYS
     Route: 048
     Dates: start: 20140515, end: 20140715
  2. EUTIROX [Suspect]
     Active Substance: LEVOTHYROXINE SODIUM
     Indication: PRODUCT USED FOR UNKNOWN INDICATION
     Dosage: 125 MCG (125 MCG, 1 IN 1 D), ORAL 61 DAYS
     Route: 048
     Dates: start: 20140515, end: 20140715

REACTIONS (4)
  - Vision blurred [None]
  - Presyncope [None]
  - Palpitations [None]
  - Asthenia [None]

NARRATIVE: CASE EVENT DATE: 20140715
